FAERS Safety Report 6824205-5 (Version None)
Quarter: 2010Q3

REPORT INFORMATION
  Report Type: 
  Country: None (occurrence: None)
  Receive Date: 20100708
  Receipt Date: 20061009
  Transmission Date: 20110219
  Serious: No
  Sender: FDA-Public Use
  Company Number: US-PFIZER INC-2006125966

PATIENT
  Sex: Female

DRUGS (9)
  1. CHANTIX [Suspect]
     Indication: SMOKING CESSATION THERAPY
     Dates: start: 20061003
  2. NICOTINE [Suspect]
     Indication: SMOKING CESSATION THERAPY
     Route: 062
  3. ZOCOR [Concomitant]
  4. ISOSORBIDE [Concomitant]
  5. ACETYLSALICYLIC ACID [Concomitant]
  6. PLAQUENIL [Concomitant]
  7. METOPROLOL [Concomitant]
  8. REQUIP [Concomitant]
  9. COMBIVENT [Concomitant]

REACTIONS (3)
  - DRUG EFFECT INCREASED [None]
  - FEELING ABNORMAL [None]
  - NAUSEA [None]
